FAERS Safety Report 7495970-1 (Version None)
Quarter: 2011Q2

REPORT INFORMATION
  Report Type: 
  Country: None (occurrence: None)
  Receive Date: 20110523
  Receipt Date: 20110518
  Transmission Date: 20111010
  Serious: Yes (Other)
  Sender: FDA-Public Use
  Company Number: US-PFIZER INC-2011107745

PATIENT
  Sex: Female
  Weight: 68 kg

DRUGS (6)
  1. PROTONIX [Interacting]
     Indication: GASTRIC DISORDER
  2. PROTONIX [Interacting]
     Indication: ABDOMINAL PAIN UPPER
  3. PROTONIX [Interacting]
     Indication: DYSPEPSIA
  4. PROTONIX [Suspect]
     Indication: GASTROOESOPHAGEAL REFLUX DISEASE
     Dosage: 40 MG, 2X/DAY
     Route: 048
     Dates: start: 20100101
  5. TOPROL-XL [Concomitant]
     Indication: HYPERTENSION
     Dosage: 50 MG, UNK
  6. CIPRO [Interacting]
     Dosage: UNK

REACTIONS (3)
  - PAIN IN EXTREMITY [None]
  - ARTHRALGIA [None]
  - DRUG INTERACTION [None]
